FAERS Safety Report 8205456-4 (Version None)
Quarter: 2012Q1

REPORT INFORMATION
  Report Type: 
  Country: None (occurrence: None)
  Receive Date: 20120309
  Receipt Date: 20120306
  Transmission Date: 20120608
  Serious: Yes (Hospitalization, Other)
  Sender: FDA-Public Use
  Company Number: ADR-2012-00527

PATIENT
  Age: 40 Year
  Sex: Female

DRUGS (1)
  1. BACLOFEN [Suspect]
     Dosage: SEE B5

REACTIONS (8)
  - MUSCLE SPASTICITY [None]
  - HYPERTONIA [None]
  - OVERDOSE [None]
  - HYPOTHERMIA [None]
  - DRUG WITHDRAWAL SYNDROME [None]
  - CONDITION AGGRAVATED [None]
  - OEDEMA PERIPHERAL [None]
  - MYOTONIA [None]
